FAERS Safety Report 5036557-X (Version None)
Quarter: 2006Q2

REPORT INFORMATION
  Report Type: 
  Country: None (occurrence: None)
  Receive Date: 20060623
  Receipt Date: 20060616
  Transmission Date: 20061013
  Serious: Yes (Other)
  Sender: FDA-Public Use
  Company Number: 2005161306

PATIENT
  Age: 28 Year
  Sex: Male
  Weight: 68.0396 kg

DRUGS (1)
  1. VIAGRA [Suspect]
     Indication: ERECTILE DYSFUNCTION
     Dosage: 50 MG, ORAL
     Route: 048
     Dates: start: 20000101, end: 20040601

REACTIONS (4)
  - BLINDNESS UNILATERAL [None]
  - CYANOPSIA [None]
  - DRUG INEFFECTIVE [None]
  - OPTIC NEURITIS [None]
